FAERS Safety Report 8594721-7 (Version None)
Quarter: 2012Q3

REPORT INFORMATION
  Report Type: 
  Country: None (occurrence: None)
  Receive Date: 20120815
  Receipt Date: 20120807
  Transmission Date: 20120928
  Serious: Yes (Hospitalization)
  Sender: FDA-Public Use
  Company Number: US-BAYER-2012-031135

PATIENT
  Age: 18 Year
  Sex: Female
  Weight: 91.156 kg

DRUGS (6)
  1. YAZ [Suspect]
     Indication: ACNE
     Dosage: UNK
     Dates: start: 20071011, end: 20100201
  2. NASONEX [Concomitant]
  3. CEPHALEXIN [Concomitant]
  4. SPIRONOLACTONE [Concomitant]
     Indication: HIRSUTISM
     Dosage: 50 MG, DAILY
     Dates: start: 20080319
  5. FEXOFENADINE [Concomitant]
  6. ANTIBIOTICS [Concomitant]

REACTIONS (6)
  - ANXIETY [None]
  - PAIN [None]
  - ANHEDONIA [None]
  - CHOLELITHIASIS [None]
  - CHOLECYSTITIS ACUTE [None]
  - INJURY [None]
